FAERS Safety Report 4644966-3 (Version None)
Quarter: 2005Q2

REPORT INFORMATION
  Report Type: 
  Country: None (occurrence: None)
  Receive Date: 20050422
  Receipt Date: 20050414
  Transmission Date: 20051028
  Serious: Yes (Other)
  Sender: FDA-Public Use
  Company Number: 2005059094

PATIENT
  Age: 47 Year
  Sex: Female
  Weight: 99.7913 kg

DRUGS (17)
  1. DETROL LA [Suspect]
     Indication: HYPERTONIC BLADDER
     Dosage: 4 MG (4 MG, 1 IN 1 D), ORAL
     Route: 048
     Dates: start: 20020101
  2. GLYBURIDE [Concomitant]
  3. ZAFIRLUKAST (ZAFIRLUKAST) [Concomitant]
  4. SALBUTAMOL (SALBUTAMOL) [Concomitant]
  5. COMBIVENT [Concomitant]
  6. IODINE (IODINE) [Concomitant]
  7. HYDROCHLOROTHIAZIDE [Concomitant]
  8. CIMETIDINE [Concomitant]
  9. LEVOTHYROXINE SODIUM [Concomitant]
  10. PROCHLORPERAZINE MALEATE [Concomitant]
  11. QUETIAPINE FUMARATE [Concomitant]
  12. QUININE SULFATE [Concomitant]
  13. TRAZODONE HCL [Concomitant]
  14. CLONIDINE [Concomitant]
  15. DEXTROPROPOXYPHENE HYDROCHLORIDE (DEXTROPROPOXYPHENE HYDROCHLORIDE) [Concomitant]
  16. BUPROPION HYDROCHLORIDE [Concomitant]
  17. LISINOPRIL [Concomitant]

REACTIONS (3)
  - BILE DUCT CANCER [None]
  - DIABETES MELLITUS [None]
  - NEOPLASM MALIGNANT [None]
